FAERS Safety Report 7371609-0 (Version None)
Quarter: 2011Q1

REPORT INFORMATION
  Report Type: 
  Country: None (occurrence: None)
  Receive Date: 20110316
  Receipt Date: 20110303
  Transmission Date: 20110831
  Serious: Yes (Disabling)
  Sender: FDA-Public Use
  Company Number: 2011MA002146

PATIENT
  Age: 6 Week
  Sex: Male

DRUGS (13)
  1. FLUDARABINE PHOSPHATE [Suspect]
     Indication: BONE MARROW CONDITIONING REGIMEN
     Dosage: 30 MG/M2;QD;IV
     Route: 042
     Dates: start: 20110114, end: 20110118
  2. TREOSULFAN (TREOSULFAN) [Suspect]
     Indication: BONE MARROW CONDITIONING REGIMEN
     Dosage: 12 G/M2; IV
     Route: 042
     Dates: start: 20110114, end: 20110116
  3. CLONAZEPAM [Concomitant]
  4. ACYCLOVIR [Concomitant]
  5. TACROLIMUS [Concomitant]
  6. COTRIM [Concomitant]
  7. KIOVIG [Concomitant]
  8. ONDANSETRON [Concomitant]
  9. ALLOPURINOL [Concomitant]
  10. CYCLOSPORINE [Concomitant]
  11. CAMPATH [Concomitant]
  12. AMBISOME [Concomitant]
  13. MYCOPHENOLIC ACID [Concomitant]

REACTIONS (3)
  - HYPERTONIA [None]
  - FEELING JITTERY [None]
  - CONVULSION [None]
